FAERS Safety Report 9995218 (Version 2)
Quarter: 2014Q2

REPORT INFORMATION
  Report Type: Spontaneous
  Country: IT (occurrence: IT)
  Receive Date: 20140311
  Receipt Date: 20140416
  Transmission Date: 20141212
  Serious: Yes (Hospitalization)
  Sender: FDA-Public Use
  Company Number: PHHY2014IT028918

PATIENT
  Age: 49 Year
  Sex: Male

DRUGS (10)
  1. CERTICAN [Suspect]
     Indication: LIVER TRANSPLANT
     Dosage: 1 MG, DAILY
     Route: 048
     Dates: start: 20120101
  2. PROGRAF [Suspect]
     Indication: LIVER TRANSPLANT
     Dosage: 2 MG, DAILY
     Route: 048
     Dates: start: 20120101
  3. PROGRAF [Suspect]
     Dosage: UNK
     Route: 048
  4. DEURSIL [Concomitant]
     Indication: ENDOSCOPY BILIARY TRACT
     Dosage: 600 MG, UNK
     Route: 048
  5. NORMIX [Concomitant]
     Indication: BACTERIAL DIARRHOEA
     Dosage: 400 MG, UNK
     Route: 048
  6. CARDIOASPIRIN [Concomitant]
     Indication: THROMBOSIS
     Dosage: 100 MG
     Route: 048
  7. HUMALOG [Concomitant]
     Indication: DIABETES MELLITUS
     Dosage: 6 IU
     Route: 058
  8. LANTUS [Concomitant]
     Indication: DIABETES MELLITUS
     Dosage: 20 IU, UNK
     Route: 058
  9. RIBAVIRINE [Concomitant]
     Indication: CHRONIC HEPATITIS C
     Dosage: 600 MG, UNK
     Route: 048
  10. INTERFERN A 2B [Concomitant]
     Indication: CHRONIC HEPATITIS C
     Dosage: 100 UG, UNK
     Route: 058

REACTIONS (4)
  - Oliguria [Recovered/Resolved]
  - Gastroenteritis [Recovered/Resolved]
  - Nausea [Recovered/Resolved]
  - Vomiting [Recovered/Resolved]
